FAERS Safety Report 4999463-2 (Version None)
Quarter: 2006Q2

REPORT INFORMATION
  Report Type: 
  Country: None (occurrence: None)
  Receive Date: 20060511
  Receipt Date: 20060504
  Transmission Date: 20061013
  Serious: Yes (Other)
  Sender: FDA-Public Use
  Company Number: 2006UW08754

PATIENT
  Age: 44 Year
  Sex: Male
  Weight: 78.5 kg

DRUGS (5)
  1. SEROQUEL [Suspect]
     Indication: AGGRESSION
     Dates: start: 20041001
  2. SEROQUEL [Suspect]
     Indication: INTENTIONAL SELF-INJURY
     Dates: start: 20041001
  3. COGENTIN [Concomitant]
     Route: 048
     Dates: start: 20041001
  4. TEGRETOL [Concomitant]
     Route: 048
  5. GEODON [Concomitant]
     Route: 048
     Dates: start: 20040801, end: 20041001

REACTIONS (2)
  - FOOD INTERACTION [None]
  - TARDIVE DYSKINESIA [None]
